FAERS Safety Report 7441316-4 (Version None)
Quarter: 2011Q2

REPORT INFORMATION
  Report Type: 
  Country: None (occurrence: None)
  Receive Date: 20110428
  Receipt Date: 20110420
  Transmission Date: 20111010
  Serious: No
  Sender: FDA-Public Use
  Company Number: US-BIOGENIDEC-2011BI015122

PATIENT

DRUGS (1)
  1. AVONEX [Suspect]
     Indication: MULTIPLE SCLEROSIS
     Route: 030
     Dates: start: 20100928

REACTIONS (6)
  - ABDOMINAL DISCOMFORT [None]
  - DEPRESSED MOOD [None]
  - URINARY TRACT INFECTION [None]
  - IRRITABILITY [None]
  - FATIGUE [None]
  - KIDNEY INFECTION [None]
